FAERS Safety Report 4491251-9 (Version None)
Quarter: 2004Q4

REPORT INFORMATION
  Report Type: 
  Country: None (occurrence: None)
  Receive Date: 20041101
  Receipt Date: 20041016
  Transmission Date: 20050328
  Serious: Yes (Other)
  Sender: FDA-Public Use
  Company Number: 2004079052

PATIENT
  Sex: Female

DRUGS (1)
  1. VISINE TEARS (GLYCERIN, HYDROXYPROPYLMETHYLCELLULOSE, POLYETHYLENE GLY [Suspect]
     Indication: DRY EYE
     Dosage: DAILY, OPHTHALMIC
     Route: 047

REACTIONS (2)
  - EYE IRRITATION [None]
  - GLAUCOMA SURGERY [None]
